FAERS Safety Report 8271128-3 (Version None)
Quarter: 2012Q2

REPORT INFORMATION
  Report Type: 
  Country: None (occurrence: None)
  Receive Date: 20120410
  Receipt Date: 20120405
  Transmission Date: 20120825
  Serious: Yes (Hospitalization, Other)
  Sender: FDA-Public Use
  Company Number: FR-PFIZER INC-2012075775

PATIENT
  Age: 65 Year
  Sex: Female

DRUGS (2)
  1. ALCOHOL [Suspect]
     Dosage: UNK
  2. LYRICA [Suspect]
     Indication: NEURALGIA
     Dosage: 500-600 MG DAILY

REACTIONS (5)
  - WITHDRAWAL SYNDROME [None]
  - DELUSION [None]
  - SUICIDE ATTEMPT [None]
  - INTENTIONAL OVERDOSE [None]
  - AGGRESSION [None]
